FAERS Safety Report 6905455-6 (Version None)
Quarter: 2010Q3

REPORT INFORMATION
  Report Type: 
  Country: None (occurrence: None)
  Receive Date: 20100804
  Receipt Date: 20100722
  Transmission Date: 20110219
  Serious: Yes (Other)
  Sender: FDA-Public Use
  Company Number: PHHY2010US49133

PATIENT
  Age: 58 Year
  Sex: Male

DRUGS (2)
  1. IMATINIB [Suspect]
     Indication: DERMATOFIBROSARCOMA
     Dosage: 400 MG, BID
  2. IMATINIB [Suspect]
     Dosage: UNK

REACTIONS (9)
  - CRANIECTOMY [None]
  - DERMATOFIBROSARCOMA [None]
  - FATIGUE [None]
  - INTRA-CRANIAL LESION EXCISION [None]
  - MALIGNANT TUMOUR EXCISION [None]
  - NAUSEA [None]
  - NEOPLASM RECURRENCE [None]
  - SKIN GRAFT [None]
  - TRANSPLANT [None]
